FAERS Safety Report 6279285-5 (Version None)
Quarter: 2009Q3

REPORT INFORMATION
  Report Type: 
  Country: None (occurrence: None)
  Receive Date: 20090723
  Receipt Date: 20081215
  Transmission Date: 20100115
  Serious: Yes (Hospitalization)
  Sender: FDA-Public Use
  Company Number: US-AMGEN-KDL316679

PATIENT
  Sex: Male
  Weight: 63.6 kg

DRUGS (12)
  1. PROCRIT [Suspect]
     Indication: RENAL FAILURE CHRONIC
     Route: 058
     Dates: start: 20080104, end: 20081103
  2. LISINOPRIL [Concomitant]
     Route: 048
     Dates: start: 20070101
  3. COZAAR [Concomitant]
     Route: 048
     Dates: start: 20070101
  4. CELLCEPT [Concomitant]
     Route: 048
     Dates: start: 20071007, end: 20081029
  5. AMLODIPINE [Concomitant]
     Route: 048
     Dates: start: 20070101
  6. ZETIA [Concomitant]
     Route: 048
     Dates: start: 20070101
  7. FUROSEMIDE [Concomitant]
     Route: 048
     Dates: start: 20070101
  8. WELCHOL [Concomitant]
     Route: 048
  9. ZAROXOLYN [Concomitant]
  10. MULTI-VITAMINS [Concomitant]
  11. CALCIUM [Concomitant]
  12. ASCORBIC ACID [Concomitant]

REACTIONS (4)
  - ACIDOSIS [None]
  - ANAEMIA [None]
  - BLOOD CREATININE INCREASED [None]
  - HYPERKALAEMIA [None]
